FAERS Safety Report 13533387 (Version 6)
Quarter: 2018Q2

REPORT INFORMATION
  Report Type: Report from Study
  Country: US (occurrence: US)
  Receive Date: 20170510
  Receipt Date: 20180510
  Transmission Date: 20180711
  Serious: Yes (Hospitalization)
  Sender: FDA-Public Use
  Company Number: US-ACTELION-A-NJ2017-153585

PATIENT
  Age: 39 Year
  Sex: Female
  Weight: 76.19 kg

DRUGS (5)
  1. OPSUMIT [Suspect]
     Active Substance: MACITENTAN
     Indication: PULMONARY ARTERIAL HYPERTENSION
     Dosage: 10 MG, QD
     Route: 048
  2. WARFARIN [Concomitant]
     Active Substance: WARFARIN
  3. XARELTO [Concomitant]
     Active Substance: RIVAROXABAN
  4. ADCIRCA [Concomitant]
     Active Substance: TADALAFIL
  5. REMODULIN [Concomitant]
     Active Substance: TREPROSTINIL

REACTIONS (13)
  - Vomiting [Unknown]
  - Gastroenteritis viral [Unknown]
  - Thrombosis [Unknown]
  - Malaise [Unknown]
  - Device related infection [Unknown]
  - Blood pressure decreased [Unknown]
  - Addison^s disease [Unknown]
  - Dehydration [Unknown]
  - Diarrhoea [Not Recovered/Not Resolved]
  - Nausea [Unknown]
  - Cellulitis [Unknown]
  - Catheter management [Unknown]
  - Syncope [Unknown]

NARRATIVE: CASE EVENT DATE: 201804
